FAERS Safety Report 8440782-5 (Version None)
Quarter: 2012Q2

REPORT INFORMATION
  Report Type: 
  Country: None (occurrence: None)
  Receive Date: 20120615
  Receipt Date: 20120607
  Transmission Date: 20120825
  Serious: Yes (Hospitalization)
  Sender: FDA-Public Use
  Company Number: US-BAYER-2012-058083

PATIENT
  Age: 32 Year
  Sex: Female
  Weight: 56.372 kg

DRUGS (9)
  1. NICOTINE [Concomitant]
     Dosage: 7 MG/24HR, DAILY
     Route: 062
  2. YASMIN [Suspect]
  3. MOTRIN [Concomitant]
  4. ACETAMINOPHEN [Concomitant]
  5. HYDROCODONE [Concomitant]
  6. XANAX [Concomitant]
     Indication: ANXIETY
     Dosage: 0.5 MG, PRN
  7. BUTALBITAL ACETAMINOPHEN AND CAFFEINE [Concomitant]
     Dosage: 50-325-40
     Dates: start: 20111220
  8. DIAZEPAM [Concomitant]
     Indication: MUSCLE SPASMS
     Dosage: 5 MG, PRN
  9. DROSPIRENONE AND ETHINYL ESTRADIOL [Suspect]

REACTIONS (1)
  - PULMONARY EMBOLISM [None]
